FAERS Safety Report 4757359-5 (Version None)
Quarter: 2005Q3

REPORT INFORMATION
  Report Type: 
  Country: None (occurrence: None)
  Receive Date: 20050831
  Receipt Date: 20050825
  Transmission Date: 20060218
  Serious: Yes (Other)
  Sender: FDA-Public Use
  Company Number: US-JNJFOC-20050806415

PATIENT
  Sex: Female
  Weight: 77.11 kg

DRUGS (2)
  1. TOPAMAX [Suspect]
     Indication: MIGRAINE PROPHYLAXIS
     Route: 048
     Dates: start: 20050501
  2. NEURONTIN [Concomitant]
     Indication: FIBROMYALGIA

REACTIONS (1)
  - CEREBROVASCULAR ACCIDENT [None]
